FAERS Safety Report 23957391 (Version 2)
Quarter: 2024Q3

REPORT INFORMATION
  Report Type: Spontaneous
  Country: US (occurrence: US)
  Receive Date: 20240610
  Receipt Date: 20240807
  Transmission Date: 20241016
  Serious: Yes (Disabling, Other)
  Sender: CELLTRION
  Company Number: US-CELLTRION INC.-2024US013712

PATIENT

DRUGS (2)
  1. INFLECTRA [Suspect]
     Active Substance: INFLIXIMAB-DYYB
     Indication: Colitis ulcerative
     Dosage: UNK
     Route: 042
     Dates: start: 20231001, end: 20240626
  2. REMICADE [Concomitant]
     Active Substance: INFLIXIMAB
     Indication: Colitis ulcerative
     Dosage: 1 X 5 WEEKS

REACTIONS (4)
  - Colitis ulcerative [Recovered/Resolved]
  - Therapeutic response changed [Unknown]
  - Product substitution issue [Unknown]
  - Drug ineffective [Unknown]

NARRATIVE: CASE EVENT DATE: 20240201
